FAERS Safety Report 21686857 (Version 1)
Quarter: 2022Q4

REPORT INFORMATION
  Report Type: Spontaneous
  Country: GB (occurrence: GB)
  Receive Date: 20221206
  Receipt Date: 20221206
  Transmission Date: 20230112
  Serious: No
  Sender: FDA-Public Use
  Company Number: GB-MHRA-MED-202212021811175750-HNBKW

PATIENT
  Age: 43 Year
  Sex: Female

DRUGS (1)
  1. METRONIDAZOLE [Suspect]
     Active Substance: METRONIDAZOLE
     Indication: Gingivitis
     Route: 065
     Dates: start: 20221130

REACTIONS (2)
  - Medication error [Unknown]
  - Rash [Not Recovered/Not Resolved]

NARRATIVE: CASE EVENT DATE: 20221202
